FAERS Safety Report 7210852-8 (Version None)
Quarter: 2011Q1

REPORT INFORMATION
  Report Type: 
  Country: None (occurrence: None)
  Receive Date: 20110105
  Receipt Date: 20101231
  Transmission Date: 20110831
  Serious: Yes (Disabling)
  Sender: FDA-Public Use
  Company Number: IT-PFIZER INC-2010155725

PATIENT
  Age: 77 Year
  Sex: Female

DRUGS (4)
  1. METFORAL [Concomitant]
  2. LASIX [Concomitant]
  3. CORDARONE [Suspect]
     Indication: ATRIAL FIBRILLATION
     Dosage: UNK
     Route: 048
     Dates: start: 20100501, end: 20100730
  4. LEVOPRAID [Suspect]
     Indication: DECREASED APPETITE
     Dosage: UNK
     Route: 048
     Dates: start: 20100501, end: 20100730

REACTIONS (1)
  - EXTRAPYRAMIDAL DISORDER [None]
